FAERS Safety Report 6517001-X (Version None)
Quarter: 2009Q4

REPORT INFORMATION
  Report Type: 
  Country: None (occurrence: None)
  Receive Date: 20091223
  Receipt Date: 20091217
  Transmission Date: 20100525
  Serious: Yes (Other)
  Sender: FDA-Public Use
  Company Number: GB-ABBOTT-09P-167-0615127-00

PATIENT
  Age: 32 Year
  Sex: Male

DRUGS (2)
  1. LOPINAVIR [Suspect]
     Indication: DRUG USE FOR UNKNOWN INDICATION
  2. TRUVADA [Suspect]
     Indication: HIV INFECTION
     Dates: start: 20040401

REACTIONS (3)
  - BLOOD HIV RNA INCREASED [None]
  - CD4 LYMPHOCYTES DECREASED [None]
  - GENOTYPE DRUG RESISTANCE TEST POSITIVE [None]
